FAERS Safety Report 5287228-6 (Version None)
Quarter: 2007Q1

REPORT INFORMATION
  Report Type: 
  Country: None (occurrence: None)
  Receive Date: 20070329
  Receipt Date: 20070314
  Transmission Date: 20070707
  Serious: Yes (Hospitalization, Other)
  Sender: FDA-Public Use
  Company Number: 2007RR-06346

PATIENT
  Age: 66 Year
  Sex: Male

DRUGS (1)
  1. FUROSEMIDE [Suspect]
     Indication: OEDEMA
     Dosage: 40 MG
     Dates: start: 20030201

REACTIONS (7)
  - CONDITION AGGRAVATED [None]
  - GAIT DISTURBANCE [None]
  - GENERALISED OEDEMA [None]
  - HYPOTHYROIDISM [None]
  - HYPOVITAMINOSIS [None]
  - RADIATION INJURY [None]
  - VITAMIN B1 DEFICIENCY [None]
